FAERS Safety Report 13496350 (Version 2)
Quarter: 2017Q2

REPORT INFORMATION
  Report Type: Spontaneous
  Country: FR (occurrence: FR)
  Receive Date: 20170428
  Receipt Date: 20170428
  Transmission Date: 20170830
  Serious: No
  Sender: FDA-Public Use
  Company Number: FR-JAZZ-JPI-P-013174

PATIENT
  Age: 44 Year
  Sex: Female

DRUGS (23)
  1. XYREM [Suspect]
     Active Substance: SODIUM OXYBATE
     Dosage: 2.25 G, BID
     Route: 048
     Dates: start: 20101011, end: 20101025
  2. XYREM [Suspect]
     Active Substance: SODIUM OXYBATE
     Dosage: 3 G, BID
     Route: 048
     Dates: start: 20101118, end: 20101212
  3. XYREM [Suspect]
     Active Substance: SODIUM OXYBATE
     Dosage: SINGLE (3.75 GM FIRST DOSE/3 GM SECOND DOSE)
     Route: 048
     Dates: start: 20110102, end: 20110107
  4. XYREM [Suspect]
     Active Substance: SODIUM OXYBATE
     Dosage: 4.5 G, BID
     Route: 048
     Dates: start: 201702
  5. CYMBALTA [Concomitant]
     Active Substance: DULOXETINE HYDROCHLORIDE
  6. XYREM [Suspect]
     Active Substance: SODIUM OXYBATE
     Indication: NARCOLEPSY
     Dosage: 2.25 G, BID
     Route: 048
     Dates: start: 20100919, end: 20100925
  7. XYREM [Suspect]
     Active Substance: SODIUM OXYBATE
     Dosage: SINGLE (3.75 GM FIRST DOSE/3 GM SECOND DOSE)
     Route: 048
     Dates: start: 20101214, end: 20101217
  8. XYREM [Suspect]
     Active Substance: SODIUM OXYBATE
     Dosage: SINGLE (3.75 GM FIRST DOSE/3 GM SECOND DOSE)
     Route: 048
     Dates: start: 20101229, end: 20101230
  9. XYREM [Suspect]
     Active Substance: SODIUM OXYBATE
     Route: 048
     Dates: start: 20110512, end: 20110611
  10. CITALOPRAM HYDROBROMIDE. [Concomitant]
     Active Substance: CITALOPRAM HYDROBROMIDE
  11. XYREM [Suspect]
     Active Substance: SODIUM OXYBATE
     Dosage: 1.5 G, BID
     Route: 048
     Dates: start: 20100926, end: 20101010
  12. XYREM [Suspect]
     Active Substance: SODIUM OXYBATE
     Dosage: 4.5 G, QD
     Route: 048
     Dates: start: 2016
  13. PITOLISANT [Concomitant]
     Active Substance: PITOLISANT
  14. XYREM [Suspect]
     Active Substance: SODIUM OXYBATE
     Route: 048
     Dates: start: 20110117, end: 20110126
  15. XYREM [Suspect]
     Active Substance: SODIUM OXYBATE
     Dosage: SINGLE (2 GM FIRST DOSE/3.75 GM SECOND DOSE)
     Route: 048
     Dates: start: 20110127, end: 20110511
  16. XYREM [Suspect]
     Active Substance: SODIUM OXYBATE
     Dosage: 3 G, BID
     Route: 048
     Dates: start: 20101026, end: 20101116
  17. XYREM [Suspect]
     Active Substance: SODIUM OXYBATE
     Dosage: 2.5 G, QD
     Route: 048
     Dates: start: 20101213, end: 20101213
  18. XYREM [Suspect]
     Active Substance: SODIUM OXYBATE
     Dosage: 4 G, QD
     Route: 048
     Dates: start: 20110612
  19. MODAFINIL. [Concomitant]
     Active Substance: MODAFINIL
  20. WAKIX [Concomitant]
  21. XYREM [Suspect]
     Active Substance: SODIUM OXYBATE
     Dosage: SINGLE (3.75 GM FIRST DOSE/3 GM SECOND DOSE)
     Route: 048
     Dates: start: 20101219, end: 20101223
  22. XYREM [Suspect]
     Active Substance: SODIUM OXYBATE
     Dosage: 3.5 G, QD
     Route: 048
     Dates: start: 20110108, end: 20110114
  23. VALPROMIDE [Concomitant]
     Active Substance: VALPROMIDE

REACTIONS (11)
  - Malaise [Recovered/Resolved]
  - Dizziness [Unknown]
  - Vomiting [Unknown]
  - Incorrect dose administered [Unknown]
  - Poor quality sleep [Unknown]
  - Constipation [Recovered/Resolved]
  - Fatigue [Recovered/Resolved]
  - Nausea [Unknown]
  - Somnolence [Unknown]
  - Diarrhoea [Unknown]
  - Hyperhidrosis [Recovered/Resolved]

NARRATIVE: CASE EVENT DATE: 20100919
